FAERS Safety Report 10660377 (Version 2)
Quarter: 2014Q4

REPORT INFORMATION
  Report Type: Spontaneous
  Country: US (occurrence: US)
  Receive Date: 20141217
  Receipt Date: 20141217
  Transmission Date: 20150529
  Serious: No
  Sender: FDA-Public Use
  Company Number: US-GLAXOSMITHKLINE-A1086046A

PATIENT

DRUGS (10)
  1. NORCO [Concomitant]
     Active Substance: ACETAMINOPHEN\HYDROCODONE BITARTRATE
  2. BLOOD PRESSURE MEDICATION [Concomitant]
     Active Substance: UNSPECIFIED INGREDIENT
  3. WATER PILL [Concomitant]
     Active Substance: UNSPECIFIED INGREDIENT
  4. NAUSEA MEDICATION (UNKNOWN) [Concomitant]
     Active Substance: UNSPECIFIED INGREDIENT
  5. NOVOLOG [Concomitant]
     Active Substance: INSULIN ASPART
  6. MORPHINE [Concomitant]
     Active Substance: MORPHINE
  7. THYROID [Concomitant]
     Active Substance: LEVOTHYROXINE\LIOTHYRONINE
  8. LANTUS [Concomitant]
     Active Substance: INSULIN GLARGINE
  9. VOTRIENT [Suspect]
     Active Substance: PAZOPANIB HYDROCHLORIDE
     Indication: RENAL CELL CARCINOMA
     Dosage: 200 MG, UNKNOWN DOSINGON F/U 800 MG DAILYON F/U REDUCED DOSE TO 200 MG DAILY
     Route: 048
     Dates: start: 201407
  10. SUPPOSITORY [Concomitant]

REACTIONS (9)
  - Headache [Recovering/Resolving]
  - Skin discolouration [Recovering/Resolving]
  - Decreased appetite [Recovering/Resolving]
  - Adverse drug reaction [Recovering/Resolving]
  - Abdominal pain upper [Recovering/Resolving]
  - Hospice care [Unknown]
  - Pallor [Recovering/Resolving]
  - Vomiting [Recovering/Resolving]
  - Asthenia [Recovering/Resolving]

NARRATIVE: CASE EVENT DATE: 201407
